FAERS Safety Report 17343254 (Version 1)
Quarter: 2020Q1

REPORT INFORMATION
  Report Type: Spontaneous
  Country: US (occurrence: US)
  Receive Date: 20200129
  Receipt Date: 20200129
  Transmission Date: 20200409
  Serious: No
  Sender: FDA-Public Use
  Company Number: US-ALLERGAN-1907916US

PATIENT
  Sex: Female

DRUGS (3)
  1. BOTOX COSMETIC [Suspect]
     Active Substance: ONABOTULINUMTOXINA
     Indication: SKIN WRINKLING
     Dosage: ACTUAL: TOTAL 30 UNITS SINGLE TO LATERAL CANTHAL LINES, FOREHEAD LINES, GLABELLAR LINES
     Route: 030
  2. BOTOX COSMETIC [Suspect]
     Active Substance: ONABOTULINUMTOXINA
     Indication: SKIN WRINKLING
     Dosage: ACTUAL: TOTAL 30 UNITS SINGLE TO LATERAL CANTHAL LINES, FOREHEAD LINES, GLABELLAR LINES
     Route: 030
  3. BOTOX COSMETIC [Suspect]
     Active Substance: ONABOTULINUMTOXINA
     Indication: SKIN WRINKLING
     Dosage: ACTUAL: TOTAL 30 UNITS SINGLE TO LATERAL CANTHAL LINES, FOREHEAD LINES, GLABELLAR LINES
     Route: 030

REACTIONS (1)
  - Drug ineffective [Unknown]
